FAERS Safety Report 9452674 (Version 2)
Quarter: 2013Q4

REPORT INFORMATION
  Report Type: Spontaneous
  Country: FR (occurrence: FR)
  Receive Date: 20130812
  Receipt Date: 20131212
  Transmission Date: 20140711
  Serious: Yes (Hospitalization)
  Sender: FDA-Public Use
  Company Number: FR-ROCHE-1258139

PATIENT
  Age: 61 Year
  Sex: Male

DRUGS (9)
  1. XELODA [Suspect]
     Indication: RECTAL ADENOCARCINOMA
     Dosage: FIRST CYCLE
     Route: 048
     Dates: start: 20130419
  2. XELODA [Suspect]
     Dosage: FOURTH CYCLE
     Route: 048
     Dates: start: 20130625, end: 20130712
  3. XELODA [Suspect]
     Route: 048
     Dates: start: 20130716, end: 20130722
  4. ELOXATINE [Suspect]
     Indication: RECTAL ADENOCARCINOMA
     Route: 048
     Dates: start: 20130419
  5. INEXIUM [Suspect]
     Indication: ABDOMINAL PAIN UPPER
     Route: 048
     Dates: start: 20130220
  6. CONTRAMAL [Suspect]
     Indication: ABDOMINAL PAIN
     Route: 048
     Dates: start: 20130221, end: 20130722
  7. PHLOROGLUCINOL ARROW [Suspect]
     Indication: ABDOMINAL PAIN
     Route: 048
     Dates: start: 20130703
  8. KARDEGIC [Suspect]
     Indication: PRODUCT USED FOR UNKNOWN INDICATION
     Route: 048
     Dates: start: 20130226
  9. XATRAL [Suspect]
     Indication: BENIGN PROSTATIC HYPERPLASIA
     Route: 048
     Dates: start: 20130619

REACTIONS (1)
  - Pancreatitis acute [Recovered/Resolved]
